FAERS Safety Report 12812834 (Version 1)
Quarter: 2016Q4

REPORT INFORMATION
  Report Type: Spontaneous
  Country: US (occurrence: US)
  Receive Date: 20161005
  Receipt Date: 20161005
  Transmission Date: 20170207
  Serious: No
  Sender: FDA-Public Use
  Company Number: US-ELI_LILLY_AND_COMPANY-US201609011706

PATIENT
  Sex: Male

DRUGS (14)
  1. HUMULIN R U-500 [Suspect]
     Active Substance: INSULIN HUMAN
     Indication: TYPE 2 DIABETES MELLITUS
     Dosage: 40 U, PRN MORNING
     Route: 065
     Dates: start: 2014
  2. HUMULIN R [Suspect]
     Active Substance: INSULIN HUMAN
     Dosage: 40 U, PRN MORNING
  3. HUMULIN R [Suspect]
     Active Substance: INSULIN HUMAN
     Dosage: 60 U, PRN AFTERNOON
     Dates: start: 2014
  4. HUMULIN R U-500 [Suspect]
     Active Substance: INSULIN HUMAN
     Dosage: 80 U, PRN AT DINNER
     Route: 065
     Dates: start: 2014
  5. HUMULIN R U-500 [Suspect]
     Active Substance: INSULIN HUMAN
     Dosage: 60 U, PRN AFTERNOON,
     Route: 065
  6. HUMULIN R U-500 [Suspect]
     Active Substance: INSULIN HUMAN
     Dosage: 80 U, PRN AT DINNER
     Route: 065
  7. HUMULIN N [Suspect]
     Active Substance: INSULIN HUMAN
     Indication: TYPE 2 DIABETES MELLITUS
     Dosage: UNK UNK, UNKNOWN
     Route: 065
  8. HUMULIN R U-500 [Suspect]
     Active Substance: INSULIN HUMAN
     Dosage: 40 U, PRN MORNING
     Route: 065
  9. HUMULIN R [Suspect]
     Active Substance: INSULIN HUMAN
     Dosage: 60 U, PRN AFTERNOON
  10. HUMULIN R U-500 [Suspect]
     Active Substance: INSULIN HUMAN
     Dosage: 60 U, PRN AFTERNOON,
     Route: 065
     Dates: start: 2014
  11. HUMULIN R [Suspect]
     Active Substance: INSULIN HUMAN
     Dosage: 80 U, PRN DINNER
  12. HUMULIN R [Suspect]
     Active Substance: INSULIN HUMAN
     Indication: TYPE 2 DIABETES MELLITUS
     Dosage: 40 U, PRN MORNING
     Dates: start: 2014
  13. HUMULIN R [Suspect]
     Active Substance: INSULIN HUMAN
     Dosage: 80 U, PRN DINNER
     Dates: start: 2014
  14. TRULICITY [Suspect]
     Active Substance: DULAGLUTIDE
     Indication: TYPE 2 DIABETES MELLITUS
     Dosage: UNK UNK, UNKNOWN
     Route: 065

REACTIONS (3)
  - Blood glucose increased [Unknown]
  - Visual acuity reduced [Not Recovered/Not Resolved]
  - Wrong technique in product usage process [Unknown]

NARRATIVE: CASE EVENT DATE: 201601
